FAERS Safety Report 18839569 (Version 1)
Quarter: 2021Q1

REPORT INFORMATION
  Report Type: Report from Study
  Country: US (occurrence: US)
  Receive Date: 20210203
  Receipt Date: 20210203
  Transmission Date: 20210419
  Serious: No
  Sender: FDA-Public Use
  Company Number: US-EXELIXIS-CABO-20032349

PATIENT
  Sex: Male

DRUGS (1)
  1. CABOMETYX [Suspect]
     Active Substance: CABOZANTINIB S-MALATE
     Indication: RENAL CANCER
     Dosage: 60 MG, QD
     Route: 048
     Dates: start: 20200729

REACTIONS (9)
  - Blood pressure increased [Unknown]
  - Pruritus [Unknown]
  - Fatigue [Unknown]
  - Weight decreased [Unknown]
  - Pain in extremity [Unknown]
  - Nasal dryness [Unknown]
  - Eye pain [Unknown]
  - Platelet count decreased [Unknown]
  - Hypothyroidism [Unknown]
